FAERS Safety Report 21021948 (Version 2)
Quarter: 2022Q3

REPORT INFORMATION
  Report Type: Spontaneous
  Country: BR (occurrence: BR)
  Receive Date: 20220629
  Receipt Date: 20220712
  Transmission Date: 20221026
  Serious: Yes (Other)
  Sender: FDA-Public Use
  Company Number: BR-BAYER-2022A090051

PATIENT
  Age: 56 Year
  Sex: Female

DRUGS (1)
  1. ULTRAVIST [Suspect]
     Active Substance: IOPROMIDE
     Indication: Computerised tomogram abdomen
     Dosage: 95 ML, ONCE
     Route: 042
     Dates: start: 20220517, end: 20220517

REACTIONS (1)
  - Procedural site reaction [Recovered/Resolved]

NARRATIVE: CASE EVENT DATE: 20220517
